FAERS Safety Report 13125288 (Version 1)
Quarter: 2017Q1

REPORT INFORMATION
  Report Type: Spontaneous
  Country: US (occurrence: US)
  Receive Date: 20170117
  Receipt Date: 20170117
  Transmission Date: 20170428
  Serious: No
  Sender: FDA-Public Use
  Company Number: None

PATIENT
  Age: 79 Year
  Sex: Male

DRUGS (1)
  1. NINLARO [Suspect]
     Active Substance: IXAZOMIB
     Indication: PLASMA CELL MYELOMA
     Dosage: NINLARO 3MG DAYS 1,8,15 BY MOUTH
     Route: 048
     Dates: start: 20161115

REACTIONS (4)
  - Weight increased [None]
  - Fatigue [None]
  - Platelet count decreased [None]
  - Fluid retention [None]
